FAERS Safety Report 23102046 (Version 1)
Quarter: 2023Q4

REPORT INFORMATION
  Report Type: Other
  Country: CA (occurrence: CA)
  Receive Date: 20231025
  Receipt Date: 20231025
  Transmission Date: 20240110
  Serious: Yes (Other)
  Sender: FDA-Public Use
  Company Number: CA-APOTEX-2023AP015988

PATIENT
  Sex: Male

DRUGS (3)
  1. ROSUVASTATIN [Suspect]
     Active Substance: ROSUVASTATIN
     Indication: Arteriosclerosis
     Dosage: 40 MILLIGRAM
     Route: 065
  2. ROSUVASTATIN [Suspect]
     Active Substance: ROSUVASTATIN
     Dosage: 80 MILLIGRAM, QD
     Route: 065
  3. ROSUVASTATIN [Suspect]
     Active Substance: ROSUVASTATIN
     Dosage: 40 MILLIGRAM, QD
     Route: 065

REACTIONS (6)
  - Drug intolerance [Recovering/Resolving]
  - Low density lipoprotein increased [Recovering/Resolving]
  - Pain [Recovering/Resolving]
  - Myositis [Recovering/Resolving]
  - Myalgia [Recovering/Resolving]
  - Rhabdomyolysis [Recovering/Resolving]
